FAERS Safety Report 16924629 (Version 1)
Quarter: 2019Q4

REPORT INFORMATION
  Report Type: Spontaneous
  Country: US (occurrence: US)
  Receive Date: 20191016
  Receipt Date: 20191016
  Transmission Date: 20200122
  Serious: Yes (Other)
  Sender: FDA-Public Use
  Company Number: US-JNJFOC-20191004943

PATIENT
  Sex: Male

DRUGS (6)
  1. TIVICAY [Concomitant]
     Active Substance: DOLUTEGRAVIR SODIUM
  2. EMTRICITABINE W/TENOFOVIR ALAFENAMIDE FUMARAT [Concomitant]
     Active Substance: EMTRICITABINE\TENOFOVIR
  3. PRAVASTATIN. [Concomitant]
     Active Substance: PRAVASTATIN
  4. ERLEADA [Suspect]
     Active Substance: APALUTAMIDE
     Indication: PROSTATE CANCER
     Route: 048
  5. MORPHINE [Concomitant]
     Active Substance: MORPHINE
  6. HYDROMORPHONE [Concomitant]
     Active Substance: HYDROMORPHONE

REACTIONS (1)
  - Cellulitis [Unknown]
